FAERS Safety Report 8879001 (Version 1)
Quarter: 2012Q4

REPORT INFORMATION
  Report Type: 
  Country: US (occurrence: US)
  Receive Date: 20121026
  Receipt Date: 20121026
  Transmission Date: 20130627
  Serious: Yes (Other)
  Sender: FDA-Public Use
  Company Number: US-JNJFOC-20121009799

PATIENT
  Sex: Female
  Weight: 46.27 kg

DRUGS (8)
  1. ORTHO TRICYCLEN LO [Suspect]
     Indication: MOOD SWINGS
     Route: 048
     Dates: start: 2010, end: 201108
  2. ORTHO TRICYCLEN LO [Suspect]
     Indication: MENSTRUAL DISORDER
     Route: 048
     Dates: start: 2010, end: 201108
  3. ORTHO TRI CYCLEN [Suspect]
     Indication: MOOD SWINGS
     Route: 048
  4. ORTHO TRI CYCLEN [Suspect]
     Indication: MENSTRUAL DISORDER
     Route: 048
  5. LOW OGESTREL [Suspect]
     Indication: MOOD SWINGS
     Route: 048
     Dates: end: 201111
  6. LOW OGESTREL [Suspect]
     Indication: MENSTRUAL DISORDER
     Route: 048
     Dates: end: 201111
  7. NUVA RING [Suspect]
     Indication: MENSTRUAL DISORDER
     Route: 067
     Dates: end: 2012
  8. NUVA RING [Suspect]
     Indication: MOOD SWINGS
     Route: 067
     Dates: end: 2012

REACTIONS (6)
  - Mood swings [Unknown]
  - Aggression [Unknown]
  - Off label use [Unknown]
  - Muscle spasms [Unknown]
  - Acne [Unknown]
  - Dyskinesia [Unknown]
